FAERS Safety Report 7909914 (Version 2)
Quarter: 2012Q4

REPORT INFORMATION
  Report Type: Spontaneous
  Country: FR (occurrence: None)
  Receive Date: 20110331
  Receipt Date: 20120911
  Transmission Date: 20130627
  Serious: Yes (Hospitalization, Other)
  Sender: FDA-Public Use
  Company Number: FR-1185516

PATIENT
  Age: 75 Year
  Sex: Male

DRUGS (1)
  1. TRAVATAN [Suspect]
     Indication: GLAUCOMA
     Dosage: (OPHTHALMIC)
     Route: 047
     Dates: start: 201010, end: 201012

REACTIONS (6)
  - Dyspnoea exertional [None]
  - Chest pain [None]
  - Chest discomfort [None]
  - Fatigue [None]
  - Pain in extremity [None]
  - Coronary artery disease [None]
